FAERS Safety Report 4276827-6 (Version None)
Quarter: 2004Q1

REPORT INFORMATION
  Report Type: 
  Country: None (occurrence: None)
  Receive Date: 20040120
  Receipt Date: 20040108
  Transmission Date: 20041129
  Serious: Yes (Hospitalization, Other)
  Sender: FDA-Public Use
  Company Number: 2004-01-0239

PATIENT
  Age: 45 Year
  Sex: Male

DRUGS (7)
  1. BETAMETHASONE DIPROPIONATE [Suspect]
     Indication: PSORIASIS
     Dosage: 0.05% 30MG QD TOP-DERM
     Route: 061
     Dates: start: 19940101
  2. BETAMETHASONE DIPROPIONATE OINTMENT [Suspect]
     Indication: PSORIASIS
     Dosage: 0.05% 30MG QD TOP-DERM
     Route: 061
     Dates: start: 19940101
  3. BETAMETHASONE DIPROPIONATE [Suspect]
     Indication: DERMATOSIS
     Dosage: TOP-DERM
     Route: 061
  4. ..... [Concomitant]
  5. CYCLOSPORINE [Suspect]
     Indication: PSORIASIS
     Dosage: 3-4MG/KG QD*
     Dates: start: 19940701, end: 19971001
  6. CYCLOSPORINE [Suspect]
     Indication: PSORIASIS
     Dosage: 3-4MG/KG QD*
     Dates: start: 19980501
  7. SALICYLIC ACID [Concomitant]

REACTIONS (8)
  - ASEPTIC NECROSIS BONE [None]
  - BLOOD CORTISOL ABNORMAL [None]
  - CONDITION AGGRAVATED [None]
  - DERMATITIS EXFOLIATIVE [None]
  - DRUG INEFFECTIVE [None]
  - PSORIASIS [None]
  - RASH PUSTULAR [None]
  - SKIN ATROPHY [None]
